APPROVED DRUG PRODUCT: LACTULOSE
Active Ingredient: LACTULOSE
Strength: 10GM/15ML
Dosage Form/Route: SOLUTION;ORAL
Application: A074602 | Product #001 | TE Code: AA
Applicant: AUROBINDO PHARMA LTD
Approved: Nov 14, 1996 | RLD: No | RS: No | Type: RX